FAERS Safety Report 11426242 (Version 1)
Quarter: 2015Q3

REPORT INFORMATION
  Report Type: Spontaneous
  Country: US (occurrence: US)
  Receive Date: 20150821
  Receipt Date: 20150821
  Transmission Date: 20151125
  Serious: No
  Sender: FDA-Public Use
  Company Number: US-ELI_LILLY_AND_COMPANY-US201305002053

PATIENT
  Age: 40 Year
  Sex: Female

DRUGS (2)
  1. HUMULIN R [Suspect]
     Active Substance: INSULIN HUMAN
     Indication: DIABETES MELLITUS
     Dosage: 40 U, TID
  2. HUMULIN R [Suspect]
     Active Substance: INSULIN HUMAN
     Dosage: 40 U, TID

REACTIONS (2)
  - Blood glucose abnormal [Recovered/Resolved]
  - Hypoglycaemia [Recovered/Resolved]
